FAERS Safety Report 6508223-2 (Version None)
Quarter: 2009Q4

REPORT INFORMATION
  Report Type: 
  Country: None (occurrence: None)
  Receive Date: 20091221
  Receipt Date: 20081205
  Transmission Date: 20100525
  Serious: No
  Sender: FDA-Public Use
  Company Number: US-ASTRAZENECA-2008UW27148

PATIENT
  Age: 76 Year
  Sex: Male
  Weight: 75.3 kg

DRUGS (3)
  1. CRESTOR [Suspect]
     Indication: BLOOD CHOLESTEROL INCREASED
     Route: 048
  2. ALTACE [Concomitant]
  3. AVODART [Concomitant]

REACTIONS (1)
  - MUSCLE SPASMS [None]
